FAERS Safety Report 6130182-5 (Version None)
Quarter: 2009Q1

REPORT INFORMATION
  Report Type: 
  Country: None (occurrence: None)
  Receive Date: 20090324
  Receipt Date: 20090318
  Transmission Date: 20090719
  Serious: Yes (Hospitalization)
  Sender: FDA-Public Use
  Company Number: FR-BRISTOL-MYERS SQUIBB COMPANY-14553093

PATIENT
  Sex: Male

DRUGS (1)
  1. CORGARD [Suspect]
     Indication: ELECTROCARDIOGRAM QT PROLONGED
     Route: 064
     Dates: start: 20080530, end: 20090226

REACTIONS (4)
  - ARRHYTHMIA [None]
  - FOETAL GROWTH RETARDATION [None]
  - HYPOGLYCAEMIA [None]
  - OLIGOHYDRAMNIOS [None]
